FAERS Safety Report 9496845 (Version 1)
Quarter: 2013Q3

REPORT INFORMATION
  Report Type: Spontaneous
  Country: CN (occurrence: CN)
  Receive Date: 20130904
  Receipt Date: 20130904
  Transmission Date: 20140515
  Serious: Yes (Other)
  Sender: FDA-Public Use
  Company Number: CN-PFIZER INC-2013251152

PATIENT
  Age: 23 Year
  Sex: Male
  Weight: 53 kg

DRUGS (9)
  1. SOLU-MEDROL [Suspect]
     Indication: DRUG ERUPTION
     Dosage: 120 MG, ONCE DAILY
     Route: 041
     Dates: start: 20120227, end: 20120302
  2. SOLU-MEDROL [Suspect]
     Dosage: 160 MG, ONCE DAILY
     Route: 041
     Dates: start: 20120302, end: 20120306
  3. SOLU-MEDROL [Suspect]
     Dosage: 150 MG, ONCE DAILY
     Route: 041
     Dates: start: 20120306, end: 20120309
  4. SOLU-MEDROL [Suspect]
     Dosage: 140 MG, ONCE DAILY
     Route: 041
     Dates: start: 20120309, end: 20120312
  5. SOLU-MEDROL [Suspect]
     Dosage: 130 MG, ONCE DAILY
     Route: 041
     Dates: start: 20120312, end: 20120315
  6. SOLU-MEDROL [Suspect]
     Dosage: 120 MG, ONCE DAILY
     Route: 041
     Dates: start: 20120315, end: 20120317
  7. SOLU-MEDROL [Suspect]
     Dosage: 100 MG, ONCE DAILY
     Route: 041
     Dates: start: 20120317, end: 20120320
  8. SOLU-MEDROL [Suspect]
     Dosage: 80 MG, ONCE DAILY
     Route: 041
     Dates: start: 20120320, end: 20120323
  9. SOLU-MEDROL [Suspect]
     Dosage: 60 MG, ONCE DAILY
     Route: 041
     Dates: start: 20120323, end: 20120326

REACTIONS (1)
  - Schizophrenia [Recovering/Resolving]
